FAERS Safety Report 8493038-9 (Version None)
Quarter: 2012Q2

REPORT INFORMATION
  Report Type: 
  Country: None (occurrence: None)
  Receive Date: 20120627
  Receipt Date: 20120619
  Transmission Date: 20120825
  Serious: Yes (Hospitalization, Other)
  Sender: FDA-Public Use
  Company Number: AUR-APL-2012-02430

PATIENT
  Age: 52 Year
  Sex: Male

DRUGS (7)
  1. MIRTAZAPINE [Suspect]
     Indication: SUICIDE ATTEMPT
     Dosage: (3 DOSAGE FORMS,TOTAL),ORAL
     Route: 048
     Dates: start: 20120504, end: 20120504
  2. CLONAZEPAM [Suspect]
     Dosage: (3 DOSAGE FORMS,TOTAL),ORAL
     Route: 048
     Dates: start: 20120503, end: 20120504
  3. BISOPROLOL FUMARATE( BIOSPROLOL FUMARATE) [Concomitant]
  4. GLIBOMET (GLIBOMET) [Concomitant]
  5. CONGESCOR (BISOPROLOL) [Concomitant]
  6. LORAZEPAM [Suspect]
     Indication: SUICIDE ATTEMPT
     Dosage: (11 DOSAGE FORMS,TOTAL),ORAL
     Route: 048
     Dates: start: 20120503, end: 20120504
  7. ASPIRIN [Concomitant]

REACTIONS (2)
  - BRADYPHRENIA [None]
  - BRADYKINESIA [None]
